FAERS Safety Report 7826011-1 (Version None)
Quarter: 2011Q4

REPORT INFORMATION
  Report Type: 
  Country: None (occurrence: None)
  Receive Date: 20111019
  Receipt Date: 20111011
  Transmission Date: 20120403
  Serious: Yes (Hospitalization)
  Sender: FDA-Public Use
  Company Number: US-GILEAD-2011-0039322

PATIENT

DRUGS (4)
  1. ACETAMINOPHEN [Concomitant]
     Dates: start: 20110221, end: 20110224
  2. ZECUF SYRUP [Concomitant]
     Dates: start: 20110221, end: 20110226
  3. LORATADINE [Concomitant]
     Dates: start: 20110221, end: 20110302
  4. TENOFOVIR DISOPROXIL FUMARATE [Suspect]
     Dates: start: 20100517, end: 20110221

REACTIONS (2)
  - PREGNANCY [None]
  - URINARY TRACT INFECTION [None]
